FAERS Safety Report 4432103-X (Version None)
Quarter: 2004Q3

REPORT INFORMATION
  Report Type: 
  Country: None (occurrence: None)
  Receive Date: 20040818
  Receipt Date: 20040805
  Transmission Date: 20050211
  Serious: Yes (Other)
  Sender: FDA-Public Use
  Company Number: 2004053224

PATIENT
  Age: 54 Year
  Sex: Male
  Weight: 107.9561 kg

DRUGS (5)
  1. GABAPENTIN [Suspect]
     Indication: DIABETIC NEUROPATHY
     Dosage: 2700 MG (3 IN 1 D), ORAL
     Route: 048
     Dates: start: 20030401, end: 20040401
  2. ATORVASTATIN (ATORVASTATIN) [Suspect]
     Indication: HYPERLIPIDAEMIA
  3. METFORMIN HCL [Suspect]
     Indication: ILL-DEFINED DISORDER
     Dates: end: 20040301
  4. GLYBURIDE [Suspect]
     Indication: ILL-DEFINED DISORDER
     Dates: end: 20040301
  5. ROSIGLITAZONE (ROSIGLITAZONE) [Suspect]
     Indication: ILL-DEFINED DISORDER
     Dates: end: 20040301

REACTIONS (6)
  - CHOLESTASIS [None]
  - HEPATIC FIBROSIS [None]
  - HEPATIC TRAUMA [None]
  - HEPATITIS [None]
  - HEPATOBILIARY DISEASE [None]
  - HEPATOTOXICITY [None]
